FAERS Safety Report 4951450-6 (Version None)
Quarter: 2006Q1

REPORT INFORMATION
  Report Type: 
  Country: None (occurrence: None)
  Receive Date: 20060323
  Receipt Date: 20060208
  Transmission Date: 20060701
  Serious: No
  Sender: FDA-Public Use
  Company Number: US-GLAXOSMITHKLINE-A0592838A

PATIENT
  Age: 88 Year
  Sex: Female

DRUGS (6)
  1. AVANDARYL [Suspect]
     Dosage: 8MG PER DAY
     Route: 048
     Dates: start: 20060203
  2. LISINOPRIL [Concomitant]
  3. QUININE [Concomitant]
  4. VITAMINS [Concomitant]
  5. HYDROCHLOROTHIAZIDE [Concomitant]
  6. POLYETHYLENE GLYCOL [Concomitant]

REACTIONS (1)
  - DIARRHOEA [None]
